FAERS Safety Report 14235775 (Version 1)
Quarter: 2017Q4

REPORT INFORMATION
  Report Type: Spontaneous
  Country: US (occurrence: US)
  Receive Date: 20171129
  Receipt Date: 20171129
  Transmission Date: 20180321
  Serious: No
  Sender: FDA-Public Use
  Company Number: US-DRREDDYS-USA/USA/17/0093921

PATIENT
  Age: 63 Year
  Sex: Female

DRUGS (4)
  1. PEGFILGRASTIM [Concomitant]
     Active Substance: PEGFILGRASTIM
     Indication: PRODUCT USED FOR UNKNOWN INDICATION
     Route: 065
  2. DOCETAXEL. [Suspect]
     Active Substance: DOCETAXEL
     Indication: SEROUS CYSTADENOCARCINOMA OVARY
     Dosage: EVERY THREE WEEK (Q3 WEEK)
     Route: 042
  3. PACLITAXEL. [Suspect]
     Active Substance: PACLITAXEL
     Indication: SEROUS CYSTADENOCARCINOMA OVARY
     Dosage: EVERY THREE WEEKS
     Route: 065
  4. CISPLATIN. [Suspect]
     Active Substance: CISPLATIN
     Indication: SEROUS CYSTADENOCARCINOMA OVARY
     Dosage: EVERY THREE WEEK
     Route: 065

REACTIONS (1)
  - Neuropathy peripheral [Unknown]
